FAERS Safety Report 17044888 (Version 1)
Quarter: 2019Q4

REPORT INFORMATION
  Report Type: Report from Study
  Country: JP (occurrence: JP)
  Receive Date: 20191118
  Receipt Date: 20191118
  Transmission Date: 20200122
  Serious: Yes (Hospitalization)
  Sender: FDA-Public Use
  Company Number: JP-PFIZER INC-2019488189

PATIENT
  Age: 70 Year
  Sex: Female
  Weight: 52.5 kg

DRUGS (11)
  1. XELJANZ [Suspect]
     Active Substance: TOFACITINIB CITRATE
     Indication: RHEUMATOID ARTHRITIS
     Dosage: 5 MG, 1X/DAY
     Dates: start: 20170516, end: 20180809
  2. FOLIAMIN [Concomitant]
     Active Substance: FOLIC ACID
     Dosage: UNK
     Route: 048
     Dates: start: 20170530
  3. RHEUMATREX [Concomitant]
     Active Substance: METHOTREXATE SODIUM
     Dosage: 2 MG, WEEKLY
     Dates: start: 20170530, end: 20170620
  4. RHEUMATREX [Concomitant]
     Active Substance: METHOTREXATE SODIUM
     Dosage: 6 MG, WEEKLY
     Dates: start: 20170621, end: 20170628
  5. TAKECAB [Concomitant]
     Active Substance: VONOPRAZAN FUMURATE
     Dosage: UNK
     Route: 048
     Dates: start: 20170530
  6. RHEUMATREX [Concomitant]
     Active Substance: METHOTREXATE SODIUM
     Dosage: 4 MG, WEEKLY
     Dates: start: 20170823, end: 20180726
  7. CALONAL [Concomitant]
     Active Substance: ACETAMINOPHEN
     Dosage: UNK
     Route: 048
     Dates: start: 20170705
  8. RHEUMATREX [Concomitant]
     Active Substance: METHOTREXATE SODIUM
     Dosage: 4 MG, WEEKLY
     Dates: start: 20170629, end: 20170801
  9. RHEUMATREX [Concomitant]
     Active Substance: METHOTREXATE SODIUM
     Dosage: 2 MG, WEEKLY
     Dates: start: 20170802, end: 20170822
  10. DENOTAS [Concomitant]
     Active Substance: CALCIUM CARBONATE\CHOLECALCIFEROL\MAGNESIUM CARBONATE
     Route: 048
  11. PRALIA [Concomitant]
     Active Substance: DENOSUMAB
     Route: 058

REACTIONS (1)
  - Tendon rupture [Recovering/Resolving]

NARRATIVE: CASE EVENT DATE: 20180529
